FAERS Safety Report 14337339 (Version 3)
Quarter: 2018Q1

REPORT INFORMATION
  Report Type: Spontaneous
  Country: US (occurrence: US)
  Receive Date: 20171229
  Receipt Date: 20180105
  Transmission Date: 20180509
  Serious: Yes (Other)
  Sender: FDA-Public Use
  Company Number: US-PFIZER INC-2017549215

PATIENT
  Age: 59 Year
  Sex: Female

DRUGS (2)
  1. LIDOCAINE HCL [Suspect]
     Active Substance: LIDOCAINE HYDROCHLORIDE
     Dosage: 6 MG/KG, FIVE 50 MG BOLUSES EVERY FIVE MINUTES WITH A BACKGROUND CONTINUOUS INFUSION RATE OF 50 MG G
     Route: 040
  2. LIDOCAINE HCL [Suspect]
     Active Substance: LIDOCAINE HYDROCHLORIDE
     Indication: FIBROMYALGIA
     Dosage: 3 MG/KG, (150 MG)

REACTIONS (2)
  - Hypertension [Recovered/Resolved]
  - Anxiety [Recovered/Resolved]
